FAERS Safety Report 10919221 (Version 1)
Quarter: 2015Q1

REPORT INFORMATION
  Report Type: Spontaneous
  Country: US (occurrence: None)
  Receive Date: 20150312
  Receipt Date: 20150312
  Transmission Date: 20150721
  Serious: No
  Sender: FDA-Public Use
  Company Number: UNT-2015-002533

PATIENT
  Age: 41 Year
  Sex: Female
  Weight: 46.7 kg

DRUGS (1)
  1. TYVASO [Suspect]
     Active Substance: TREPROSTINIL
     Indication: PULMONARY ARTERIAL HYPERTENSION
     Route: 055
     Dates: start: 20140911

REACTIONS (7)
  - Fatigue [None]
  - Palpitations [None]
  - Headache [None]
  - Flushing [None]
  - Incorrect dose administered [None]
  - Device issue [None]
  - Dizziness [None]
